FAERS Safety Report 6847426-4 (Version None)
Quarter: 2010Q3

REPORT INFORMATION
  Report Type: 
  Country: None (occurrence: None)
  Receive Date: 20100716
  Receipt Date: 20100707
  Transmission Date: 20110219
  Serious: Yes (Other)
  Sender: FDA-Public Use
  Company Number: FR-JNJFOC-20100504461

PATIENT
  Age: 75 Year
  Sex: Female
  Weight: 58 kg

DRUGS (2)
  1. CAELYX [Suspect]
     Indication: OVARIAN EPITHELIAL CANCER
     Route: 042
  2. CAELYX [Suspect]
     Dosage: TOTAL OF EIGHT OR NINE CYCLES OF DOXORUBICIN HYDROCHLORIDE OVER TWO TREATMENTS, EVERY 28 DAYS
     Route: 042

REACTIONS (1)
  - INTERSTITIAL LUNG DISEASE [None]
